FAERS Safety Report 6592722-1 (Version None)
Quarter: 2010Q1

REPORT INFORMATION
  Report Type: 
  Country: None (occurrence: None)
  Receive Date: 20100212
  Receipt Date: 20100202
  Transmission Date: 20100710
  Serious: Yes (Other)
  Sender: FDA-Public Use
  Company Number: VISP-NO-1002S-0054

PATIENT
  Age: 29 Year
  Sex: Male
  Weight: 75 kg

DRUGS (1)
  1. VISIPAQUE [Suspect]
     Indication: DRUG USE FOR UNKNOWN INDICATION
     Dosage: 80 ML, SINGLE DOSE, I.V.
     Route: 042
     Dates: start: 20100202, end: 20100202

REACTIONS (4)
  - CHILLS [None]
  - CONTRAST MEDIA REACTION [None]
  - DIZZINESS [None]
  - PYREXIA [None]
